FAERS Safety Report 26107843 (Version 1)
Quarter: 2025Q4

REPORT INFORMATION
  Report Type: Spontaneous
  Country: CH (occurrence: CH)
  Receive Date: 20251201
  Receipt Date: 20251201
  Transmission Date: 20260118
  Serious: Yes (Hospitalization, Other)
  Sender: MYLAN
  Company Number: None

PATIENT
  Age: 64 Year
  Sex: Female
  Weight: 76 kg

DRUGS (56)
  1. VENLAFAXINE HYDROCHLORIDE [Interacting]
     Active Substance: VENLAFAXINE HYDROCHLORIDE
     Indication: Product used for unknown indication
     Dosage: 75 MILLIGRAM, AM (IN THE MORNING)
  2. VENLAFAXINE HYDROCHLORIDE [Interacting]
     Active Substance: VENLAFAXINE HYDROCHLORIDE
     Dosage: 75 MILLIGRAM, AM (IN THE MORNING)
     Route: 048
  3. VENLAFAXINE HYDROCHLORIDE [Interacting]
     Active Substance: VENLAFAXINE HYDROCHLORIDE
     Dosage: 75 MILLIGRAM, AM (IN THE MORNING)
     Route: 048
  4. VENLAFAXINE HYDROCHLORIDE [Interacting]
     Active Substance: VENLAFAXINE HYDROCHLORIDE
     Dosage: 75 MILLIGRAM, AM (IN THE MORNING)
  5. TORSEMIDE [Interacting]
     Active Substance: TORSEMIDE
     Indication: Product used for unknown indication
     Dosage: 5 MILLIGRAM, AM (IN THE MORNING)
  6. TORSEMIDE [Interacting]
     Active Substance: TORSEMIDE
     Dosage: 5 MILLIGRAM, AM (IN THE MORNING)
     Route: 048
  7. TORSEMIDE [Interacting]
     Active Substance: TORSEMIDE
     Dosage: 5 MILLIGRAM, AM (IN THE MORNING)
     Route: 048
  8. TORSEMIDE [Interacting]
     Active Substance: TORSEMIDE
     Dosage: 5 MILLIGRAM, AM (IN THE MORNING)
  9. XARELTO [Interacting]
     Active Substance: RIVAROXABAN
     Indication: Product used for unknown indication
     Dosage: 20 MILLIGRAM (SUSPENDED DURING THE HOSPITAL ADMISSION)
  10. XARELTO [Interacting]
     Active Substance: RIVAROXABAN
     Dosage: 20 MILLIGRAM (SUSPENDED DURING THE HOSPITAL ADMISSION)
     Route: 048
  11. XARELTO [Interacting]
     Active Substance: RIVAROXABAN
     Dosage: 20 MILLIGRAM (SUSPENDED DURING THE HOSPITAL ADMISSION)
     Route: 048
  12. XARELTO [Interacting]
     Active Substance: RIVAROXABAN
     Dosage: 20 MILLIGRAM (SUSPENDED DURING THE HOSPITAL ADMISSION)
  13. NOVALGIN (METAMIZOLE SODIUM) [Interacting]
     Active Substance: METAMIZOLE SODIUM
     Indication: Product used for unknown indication
     Dosage: 500 MILLIGRAM, PRN (AS REQUIRED)
  14. NOVALGIN (METAMIZOLE SODIUM) [Interacting]
     Active Substance: METAMIZOLE SODIUM
     Dosage: 500 MILLIGRAM, PRN (AS REQUIRED)
     Route: 048
  15. NOVALGIN (METAMIZOLE SODIUM) [Interacting]
     Active Substance: METAMIZOLE SODIUM
     Dosage: 500 MILLIGRAM, PRN (AS REQUIRED)
     Route: 048
  16. NOVALGIN (METAMIZOLE SODIUM) [Interacting]
     Active Substance: METAMIZOLE SODIUM
     Dosage: 500 MILLIGRAM, PRN (AS REQUIRED)
  17. PITAVASTATIN CALCIUM [Interacting]
     Active Substance: PITAVASTATIN CALCIUM
     Indication: Product used for unknown indication
     Dosage: 4 MILLIGRAM, PM (AT NIGHT)
  18. PITAVASTATIN CALCIUM [Interacting]
     Active Substance: PITAVASTATIN CALCIUM
     Dosage: 4 MILLIGRAM, PM (AT NIGHT)
     Route: 048
  19. PITAVASTATIN CALCIUM [Interacting]
     Active Substance: PITAVASTATIN CALCIUM
     Dosage: 4 MILLIGRAM, PM (AT NIGHT)
     Route: 048
  20. PITAVASTATIN CALCIUM [Interacting]
     Active Substance: PITAVASTATIN CALCIUM
     Dosage: 4 MILLIGRAM, PM (AT NIGHT)
  21. GEMCITABINE [Suspect]
     Active Substance: GEMCITABINE
     Indication: Breast cancer female
     Dosage: 1200 MILLIGRAM, TOTAL
     Dates: start: 20250821, end: 20250821
  22. GEMCITABINE [Suspect]
     Active Substance: GEMCITABINE
     Dosage: 1200 MILLIGRAM, TOTAL
     Route: 042
     Dates: start: 20250821, end: 20250821
  23. GEMCITABINE [Suspect]
     Active Substance: GEMCITABINE
     Dosage: 1200 MILLIGRAM, TOTAL
     Route: 042
     Dates: start: 20250821, end: 20250821
  24. GEMCITABINE [Suspect]
     Active Substance: GEMCITABINE
     Dosage: 1200 MILLIGRAM, TOTAL
     Dates: start: 20250821, end: 20250821
  25. RAMIPRIL [Interacting]
     Active Substance: RAMIPRIL
     Indication: Product used for unknown indication
     Dosage: 2.5 MILLIGRAM, AM (IN THE MORNING, PRESUMABLY SUSPENDED DURING THE HOSPITAL ADMISSION)
  26. RAMIPRIL [Interacting]
     Active Substance: RAMIPRIL
     Dosage: 2.5 MILLIGRAM, AM (IN THE MORNING, PRESUMABLY SUSPENDED DURING THE HOSPITAL ADMISSION)
     Route: 048
  27. RAMIPRIL [Interacting]
     Active Substance: RAMIPRIL
     Dosage: 2.5 MILLIGRAM, AM (IN THE MORNING, PRESUMABLY SUSPENDED DURING THE HOSPITAL ADMISSION)
     Route: 048
  28. RAMIPRIL [Interacting]
     Active Substance: RAMIPRIL
     Dosage: 2.5 MILLIGRAM, AM (IN THE MORNING, PRESUMABLY SUSPENDED DURING THE HOSPITAL ADMISSION)
  29. CARBOPLATIN [Suspect]
     Active Substance: CARBOPLATIN
     Indication: Breast cancer
     Dosage: 600 MILLIGRAM, TOTAL
     Dates: start: 20250821, end: 20250821
  30. CARBOPLATIN [Suspect]
     Active Substance: CARBOPLATIN
     Dosage: 600 MILLIGRAM, TOTAL
     Route: 042
     Dates: start: 20250821, end: 20250821
  31. CARBOPLATIN [Suspect]
     Active Substance: CARBOPLATIN
     Dosage: 600 MILLIGRAM, TOTAL
     Route: 042
     Dates: start: 20250821, end: 20250821
  32. CARBOPLATIN [Suspect]
     Active Substance: CARBOPLATIN
     Dosage: 600 MILLIGRAM, TOTAL
     Dates: start: 20250821, end: 20250821
  33. PANTOPRAZOLE SODIUM [Interacting]
     Active Substance: PANTOPRAZOLE SODIUM
     Indication: Product used for unknown indication
     Dosage: 40 MILLIGRAM, PRN (AS REQUIRED)
  34. PANTOPRAZOLE SODIUM [Interacting]
     Active Substance: PANTOPRAZOLE SODIUM
     Dosage: 40 MILLIGRAM, PRN (AS REQUIRED)
     Route: 048
  35. PANTOPRAZOLE SODIUM [Interacting]
     Active Substance: PANTOPRAZOLE SODIUM
     Dosage: 40 MILLIGRAM, PRN (AS REQUIRED)
     Route: 048
  36. PANTOPRAZOLE SODIUM [Interacting]
     Active Substance: PANTOPRAZOLE SODIUM
     Dosage: 40 MILLIGRAM, PRN (AS REQUIRED)
  37. DAPAGLIFLOZIN [Concomitant]
     Active Substance: DAPAGLIFLOZIN
     Dosage: UNK (PRESUMABLY SUSPENDED DURING THE HOSPITAL ADMISSION)
  38. DAPAGLIFLOZIN [Concomitant]
     Active Substance: DAPAGLIFLOZIN
     Dosage: UNK (PRESUMABLY SUSPENDED DURING THE HOSPITAL ADMISSION)
     Route: 065
  39. DAPAGLIFLOZIN [Concomitant]
     Active Substance: DAPAGLIFLOZIN
     Dosage: UNK (PRESUMABLY SUSPENDED DURING THE HOSPITAL ADMISSION)
     Route: 065
  40. DAPAGLIFLOZIN [Concomitant]
     Active Substance: DAPAGLIFLOZIN
     Dosage: UNK (PRESUMABLY SUSPENDED DURING THE HOSPITAL ADMISSION)
  41. Paspertin [Concomitant]
     Dosage: UNK
  42. Paspertin [Concomitant]
     Dosage: UNK
     Route: 065
  43. Paspertin [Concomitant]
     Dosage: UNK
     Route: 065
  44. Paspertin [Concomitant]
     Dosage: UNK
  45. CALCIUM\CHOLECALCIFEROL [Concomitant]
     Active Substance: CALCIUM\CHOLECALCIFEROL
     Dosage: UNK
  46. CALCIUM\CHOLECALCIFEROL [Concomitant]
     Active Substance: CALCIUM\CHOLECALCIFEROL
     Dosage: UNK
     Route: 065
  47. CALCIUM\CHOLECALCIFEROL [Concomitant]
     Active Substance: CALCIUM\CHOLECALCIFEROL
     Dosage: UNK
     Route: 065
  48. CALCIUM\CHOLECALCIFEROL [Concomitant]
     Active Substance: CALCIUM\CHOLECALCIFEROL
     Dosage: UNK
  49. BISOPROLOL [Concomitant]
     Active Substance: BISOPROLOL
     Dosage: UNK (PRESUMABLY SUSPENDED DURING THE HOSPITAL ADMISSION)
  50. BISOPROLOL [Concomitant]
     Active Substance: BISOPROLOL
     Dosage: UNK (PRESUMABLY SUSPENDED DURING THE HOSPITAL ADMISSION)
     Route: 065
  51. BISOPROLOL [Concomitant]
     Active Substance: BISOPROLOL
     Dosage: UNK (PRESUMABLY SUSPENDED DURING THE HOSPITAL ADMISSION)
     Route: 065
  52. BISOPROLOL [Concomitant]
     Active Substance: BISOPROLOL
     Dosage: UNK (PRESUMABLY SUSPENDED DURING THE HOSPITAL ADMISSION)
  53. DEXAMETHASONE [Concomitant]
     Active Substance: DEXAMETHASONE
     Dosage: UNK (ON DAY 2/3 AFTER CHEMOTHERAPY (START DATE PRESUMABLY 23- AUG-2025)
  54. DEXAMETHASONE [Concomitant]
     Active Substance: DEXAMETHASONE
     Dosage: UNK (ON DAY 2/3 AFTER CHEMOTHERAPY (START DATE PRESUMABLY 23- AUG-2025)
     Route: 065
  55. DEXAMETHASONE [Concomitant]
     Active Substance: DEXAMETHASONE
     Dosage: UNK (ON DAY 2/3 AFTER CHEMOTHERAPY (START DATE PRESUMABLY 23- AUG-2025)
     Route: 065
  56. DEXAMETHASONE [Concomitant]
     Active Substance: DEXAMETHASONE
     Dosage: UNK (ON DAY 2/3 AFTER CHEMOTHERAPY (START DATE PRESUMABLY 23- AUG-2025)

REACTIONS (5)
  - Mucosal inflammation [Recovering/Resolving]
  - Pancytopenia [Unknown]
  - Neutropenia [Unknown]
  - Thrombocytopenia [Unknown]
  - Anaemia [Unknown]

NARRATIVE: CASE EVENT DATE: 20250821
